FAERS Safety Report 7743361-8 (Version None)
Quarter: 2011Q3

REPORT INFORMATION
  Report Type: 
  Country: None (occurrence: None)
  Receive Date: 20110912
  Receipt Date: 20110830
  Transmission Date: 20111222
  Serious: Yes (Other)
  Sender: FDA-Public Use
  Company Number: PHFR2011GB05054

PATIENT

DRUGS (1)
  1. VOLTAREN [Suspect]
     Indication: PSORIATIC ARTHROPATHY
     Dosage: UNK UKN, UNK
     Route: 065

REACTIONS (2)
  - PORPHYRIA [None]
  - PSEUDOPORPHYRIA [None]
